FAERS Safety Report 10951431 (Version 2)
Quarter: 2015Q2

REPORT INFORMATION
  Report Type: Spontaneous
  Country: US (occurrence: US)
  Receive Date: 20150324
  Receipt Date: 20150525
  Transmission Date: 20150821
  Serious: No
  Sender: FDA-Public Use
  Company Number: US-JNJFOC-20130509521

PATIENT
  Age: 24 Year
  Sex: Male
  Weight: 70.31 kg

DRUGS (3)
  1. RISPERDAL CONSTA [Suspect]
     Active Substance: RISPERIDONE
     Indication: SCHIZOAFFECTIVE DISORDER
     Route: 030
     Dates: start: 201304
  2. RISPERDAL CONSTA [Suspect]
     Active Substance: RISPERIDONE
     Indication: SCHIZOAFFECTIVE DISORDER
     Route: 030
     Dates: start: 201211, end: 2013
  3. ZYPREXA [Concomitant]
     Active Substance: OLANZAPINE
     Indication: ANXIETY
     Dosage: DAILY
     Route: 048
     Dates: start: 201305

REACTIONS (4)
  - Malaise [Not Recovered/Not Resolved]
  - Incorrect product storage [Unknown]
  - Drug dose omission [Not Recovered/Not Resolved]
  - General physical health deterioration [Not Recovered/Not Resolved]

NARRATIVE: CASE EVENT DATE: 2013
